FAERS Safety Report 4660842-4 (Version None)
Quarter: 2005Q2

REPORT INFORMATION
  Report Type: 
  Country: None (occurrence: None)
  Receive Date: 20050427
  Receipt Date: 20040824
  Transmission Date: 20051028
  Serious: Yes (Other)
  Sender: FDA-Public Use
  Company Number: US-JNJFOC-20040808162

PATIENT
  Sex: Male

DRUGS (1)
  1. ULTRAM [Suspect]
     Indication: NEUROPATHY PERIPHERAL
     Dosage: 50 DOSE(S),  IN 1 DAY, ORAL
     Route: 048

REACTIONS (2)
  - DRUG DEPENDENCE [None]
  - DRUG WITHDRAWAL SYNDROME [None]
